FAERS Safety Report 7067296-1 (Version None)
Quarter: 2010Q4

REPORT INFORMATION
  Report Type: 
  Country: None (occurrence: None)
  Receive Date: 20101022
  Receipt Date: 20101022
  Transmission Date: 20110411
  Serious: Yes (Life-Threatening)
  Sender: FDA-Public Use
  Company Number: None

PATIENT
  Age: 71 Year
  Sex: Female
  Weight: 81.6475 kg

DRUGS (6)
  1. VORNIOSTAT [Suspect]
     Indication: BLADDER CANCER
     Dosage: 400MG PO QD
     Route: 048
     Dates: start: 20100917
  2. HYDROXYCHLORAQUINE [Suspect]
     Indication: BLADDER CANCER
     Dosage: 600MG PO QD
     Route: 048
     Dates: start: 20100917
  3. ZOFRAN [Concomitant]
  4. METOCLOPRAMIDE [Concomitant]
  5. HYDROCODONE BITARTRATE AND ACETAMINOPHEN [Concomitant]
  6. ENALAPRIL MALEATE [Concomitant]

REACTIONS (3)
  - DEHYDRATION [None]
  - NAUSEA [None]
  - VOMITING [None]
